FAERS Safety Report 17760187 (Version 1)
Quarter: 2020Q2

REPORT INFORMATION
  Report Type: Spontaneous
  Country: US (occurrence: US)
  Receive Date: 20200507
  Receipt Date: 20200507
  Transmission Date: 20200714
  Serious: Yes (Other)
  Sender: FDA-Public Use
  Company Number: None

PATIENT
  Age: 55 Year
  Sex: Female
  Weight: 68.49 kg

DRUGS (6)
  1. VITAMIN D3 [Concomitant]
     Active Substance: CHOLECALCIFEROL
  2. FOLOPRO (FOLATE) [Concomitant]
  3. OMEGA 3 [Concomitant]
     Active Substance: OMEGA-3 FATTY ACIDS
  4. VITAMIN K [Concomitant]
     Active Substance: PHYTONADIONE
  5. CALCIUM [Concomitant]
     Active Substance: CALCIUM
  6. ATOMOXETINE CAPSULES, USP 18MG [Suspect]
     Active Substance: ATOMOXETINE HYDROCHLORIDE
     Indication: DISTURBANCE IN ATTENTION
     Route: 048
     Dates: start: 20200504, end: 20200505

REACTIONS (3)
  - Product quality issue [None]
  - Product substitution issue [None]
  - Angina pectoris [None]

NARRATIVE: CASE EVENT DATE: 20200505
